FAERS Safety Report 24323043 (Version 2)
Quarter: 2025Q3

REPORT INFORMATION
  Report Type: Spontaneous
  Country: US (occurrence: US)
  Receive Date: 20240916
  Receipt Date: 20250904
  Transmission Date: 20251020
  Serious: No
  Sender: SANOFI AVENTIS
  Company Number: US-SA-2024SA265393

PATIENT
  Age: 36 Year
  Sex: Female

DRUGS (1)
  1. FABRAZYME [Suspect]
     Active Substance: AGALSIDASE BETA
     Route: 065

REACTIONS (2)
  - Globotriaosylceramide [Unknown]
  - Globotriaosylsphingosine increased [Unknown]

NARRATIVE: CASE EVENT DATE: 20240605
